FAERS Safety Report 5282245-4 (Version None)
Quarter: 2007Q1

REPORT INFORMATION
  Report Type: 
  Country: None (occurrence: None)
  Receive Date: 20070330
  Receipt Date: 20070320
  Transmission Date: 20070707
  Serious: Yes (Other)
  Sender: FDA-Public Use
  Company Number: CA-PFIZER INC-2007022625

PATIENT
  Sex: Female

DRUGS (7)
  1. LIPITOR [Suspect]
     Indication: BLOOD CHOLESTEROL INCREASED
     Route: 048
  2. VITAMIN D [Concomitant]
     Route: 048
  3. ELTROXIN [Concomitant]
     Route: 048
  4. NITROGLYCERIN [Concomitant]
     Route: 060
  5. CHLORAZEPAM [Concomitant]
     Route: 048
  6. CALCIUM [Concomitant]
     Route: 048
  7. APO-SULFATRIM DS [Concomitant]
     Route: 048

REACTIONS (4)
  - BALANCE DISORDER [None]
  - MUSCLE FATIGUE [None]
  - MUSCLE SPASMS [None]
  - VASCULAR BYPASS GRAFT [None]
